FAERS Safety Report 6089949-4 (Version None)
Quarter: 2009Q1

REPORT INFORMATION
  Report Type: 
  Country: None (occurrence: None)
  Receive Date: 20090220
  Receipt Date: 20090209
  Transmission Date: 20090719
  Serious: Yes (Hospitalization)
  Sender: FDA-Public Use
  Company Number: 231181K09USA

PATIENT
  Age: 48 Year
  Sex: Male

DRUGS (6)
  1. REBIF [Suspect]
     Indication: MULTIPLE SCLEROSIS
     Dosage: 44 MCG, 3 IN 1 WEEKS, SUBCUTANEOUS
     Route: 058
     Dates: start: 20081128
  2. KLONOPIN [Suspect]
     Indication: ANXIETY
     Dates: end: 20090127
  3. MIRTAZAPINE [Concomitant]
  4. PROZAC [Concomitant]
  5. LISINOPRIL [Concomitant]
  6. BISOPROLOL (BISOPROLOL /00802602/) [Concomitant]

REACTIONS (2)
  - DEPRESSION [None]
  - SELF-INJURIOUS IDEATION [None]
